FAERS Safety Report 6553645-7 (Version None)
Quarter: 2010Q1

REPORT INFORMATION
  Report Type: 
  Country: None (occurrence: None)
  Receive Date: 20100127
  Receipt Date: 20100114
  Transmission Date: 20100710
  Serious: Yes (Other)
  Sender: FDA-Public Use
  Company Number: PHEH2010US00758

PATIENT
  Sex: Female

DRUGS (1)
  1. RECLAST [Suspect]
     Dosage: UNK, UNK
     Dates: start: 20090201

REACTIONS (4)
  - ABSCESS JAW [None]
  - ARTHRALGIA [None]
  - JAW DISORDER [None]
  - TOOTH DISORDER [None]
